FAERS Safety Report 21049828 (Version 1)
Quarter: 2022Q3

REPORT INFORMATION
  Report Type: Spontaneous
  Country: US (occurrence: US)
  Receive Date: 20220706
  Receipt Date: 20220706
  Transmission Date: 20221026
  Serious: No
  Sender: FDA-Public Use
  Company Number: US-BAYER-2022A093702

PATIENT
  Sex: Female

DRUGS (1)
  1. MIRENA [Suspect]
     Active Substance: LEVONORGESTREL
     Indication: Hormone level abnormal
     Dosage: 20?G/DAY
     Route: 015
     Dates: start: 2011

REACTIONS (4)
  - Acne [None]
  - Off label use of device [None]
  - Device use issue [None]
  - Device use issue [None]

NARRATIVE: CASE EVENT DATE: 20110101
